FAERS Safety Report 10419745 (Version 1)
Quarter: 2014Q3

REPORT INFORMATION
  Report Type: Spontaneous
  Country: US (occurrence: None)
  Receive Date: 20140826
  Receipt Date: 20140826
  Transmission Date: 20150326
  Serious: Yes (Hospitalization)
  Sender: FDA-Public Use
  Company Number: 2014IHE00268

PATIENT
  Age: 23 Year
  Sex: Female
  Weight: 59 kg

DRUGS (1)
  1. AZO URINARY PAIN RELIEF [Suspect]
     Active Substance: PHENAZOPYRIDINE HYDROCHLORIDE
     Indication: URINARY TRACT INFECTION
     Route: 048
     Dates: start: 20140517, end: 20140519

REACTIONS (8)
  - Confusional state [None]
  - Dehydration [None]
  - Cyanosis [None]
  - Methaemoglobinaemia [None]
  - Disorientation [None]
  - Hunger [None]
  - Fatigue [None]
  - Oxygen saturation decreased [None]

NARRATIVE: CASE EVENT DATE: 20140518
